FAERS Safety Report 4314236-1 (Version None)
Quarter: 2004Q1

REPORT INFORMATION
  Report Type: 
  Country: None (occurrence: None)
  Receive Date: 20040309
  Receipt Date: 20040309
  Transmission Date: 20041129
  Serious: No
  Sender: FDA-Public Use
  Company Number: None

PATIENT
  Age: 64 Year
  Sex: Female
  Weight: 55.3388 kg

DRUGS (1)
  1. ZICAM ZICAM LLC [Suspect]
     Indication: PROPHYLAXIS
     Dosage: 1 SQUIRT EVERY 4 HO NASAL
     Route: 045
     Dates: start: 20040223, end: 20040229

REACTIONS (1)
  - TYMPANIC MEMBRANE PERFORATION [None]
